FAERS Safety Report 18587334 (Version 1)
Quarter: 2020Q4

REPORT INFORMATION
  Report Type: Spontaneous
  Country: US (occurrence: US)
  Receive Date: 20201207
  Receipt Date: 20201207
  Transmission Date: 20210114
  Serious: Yes (Hospitalization)
  Sender: FDA-Public Use
  Company Number: None

PATIENT
  Age: 81 Year
  Sex: Male
  Weight: 72.57 kg

DRUGS (1)
  1. BAMLANIVIMAB 700MG [Suspect]
     Active Substance: BAMLANIVIMAB
     Indication: COVID-19
     Dosage: ?          OTHER DOSE:700/200 MG/ML;?
     Route: 042
     Dates: start: 20201204, end: 20201204

REACTIONS (4)
  - Oxygen saturation decreased [None]
  - Dyspnoea [None]
  - Rales [None]
  - Wheezing [None]

NARRATIVE: CASE EVENT DATE: 20201204
